FAERS Safety Report 6806383-7 (Version None)
Quarter: 2010Q2

REPORT INFORMATION
  Report Type: 
  Country: None (occurrence: None)
  Receive Date: 20100629
  Receipt Date: 20080226
  Transmission Date: 20101027
  Serious: No
  Sender: FDA-Public Use
  Company Number: US-PFIZER INC-2008017639

PATIENT
  Sex: Female

DRUGS (1)
  1. XANAX [Suspect]
     Indication: SLEEP DISORDER
     Dates: end: 20080201

REACTIONS (5)
  - FEELING ABNORMAL [None]
  - HYPERHIDROSIS [None]
  - PHOTOPSIA [None]
  - VISION BLURRED [None]
  - WITHDRAWAL SYNDROME [None]
